FAERS Safety Report 19900163 (Version 1)
Quarter: 2021Q3

REPORT INFORMATION
  Report Type: Spontaneous
  Country: CA (occurrence: CA)
  Receive Date: 20210929
  Receipt Date: 20210929
  Transmission Date: 20211014
  Serious: Yes (Life-Threatening, Hospitalization, Other)
  Sender: FDA-Public Use
  Company Number: CA-TEVA-2021-CA-1959577

PATIENT
  Age: 52 Year
  Sex: Female

DRUGS (15)
  1. TEVA?DULOXETINE [Interacting]
     Active Substance: DULOXETINE
     Route: 065
  2. XYLOMETAZOLINE [Interacting]
     Active Substance: XYLOMETAZOLINE
     Indication: PRODUCT USED FOR UNKNOWN INDICATION
  3. SALBUTAMOL [Interacting]
     Active Substance: ALBUTEROL
     Indication: ASTHMA
     Route: 065
  4. TEVA?DULOXETINE [Interacting]
     Active Substance: DULOXETINE
     Indication: SCIATICA
     Dosage: 60 MILLIGRAM DAILY;
     Route: 065
  5. BUDESONIDE/FORMOTEROL [Interacting]
     Active Substance: BUDESONIDE\FORMOTEROL
     Route: 065
  6. XYLOMETAZOLINE [Interacting]
     Active Substance: XYLOMETAZOLINE
     Indication: NASAL CONGESTION
     Route: 065
  7. BUDESONIDE/FORMOTEROL [Interacting]
     Active Substance: BUDESONIDE\FORMOTEROL
     Indication: ASTHMA
     Route: 055
  8. XYLOMETAZOLINE [Interacting]
     Active Substance: XYLOMETAZOLINE
     Indication: PRODUCT USED FOR UNKNOWN INDICATION
     Route: 061
  9. TEVA?DULOXETINE [Interacting]
     Active Substance: DULOXETINE
     Dosage: 30 MILLIGRAM DAILY;
     Route: 065
  10. XYLOMETAZOLINE [Interacting]
     Active Substance: XYLOMETAZOLINE
     Route: 065
  11. BUDESONIDE/FORMOTEROL [Interacting]
     Active Substance: BUDESONIDE\FORMOTEROL
     Indication: PRODUCT USED FOR UNKNOWN INDICATION
     Route: 065
  12. TEVA?DULOXETINE [Interacting]
     Active Substance: DULOXETINE
     Indication: PRODUCT USED FOR UNKNOWN INDICATION
     Route: 065
  13. XYLOMETAZOLINE [Interacting]
     Active Substance: XYLOMETAZOLINE
     Dosage: 1 DOSAGE FORMS DAILY;
  14. XYLOMETAZOLINE [Interacting]
     Active Substance: XYLOMETAZOLINE
     Indication: NASAL CONGESTION
     Route: 061
  15. SALBUTAMOL [Suspect]
     Active Substance: ALBUTEROL
     Indication: PRODUCT USED FOR UNKNOWN INDICATION
     Route: 065

REACTIONS (14)
  - Hypertension [Recovered/Resolved]
  - Cerebral artery stenosis [Recovered/Resolved]
  - Allergy to animal [Recovered/Resolved]
  - Rebound nasal congestion [Recovered/Resolved]
  - Subarachnoid haemorrhage [Recovered/Resolved]
  - Thunderclap headache [Recovered/Resolved]
  - Product use in unapproved indication [Recovered/Resolved]
  - Headache [Recovered/Resolved]
  - Nasal septum deviation [Recovered/Resolved]
  - Nasal turbinate hypertrophy [Recovered/Resolved]
  - Reversible cerebral vasoconstriction syndrome [Recovered/Resolved]
  - Nasal mucosal disorder [Recovered/Resolved]
  - Drug interaction [Recovered/Resolved]
  - Rhinorrhoea [Recovered/Resolved]
